FAERS Safety Report 5750443-9 (Version None)
Quarter: 2008Q2

REPORT INFORMATION
  Report Type: 
  Country: None (occurrence: None)
  Receive Date: 20080528
  Receipt Date: 20070607
  Transmission Date: 20081010
  Serious: No
  Sender: FDA-Public Use
  Company Number: US-KINGPHARMUSA00001-K200700710

PATIENT

DRUGS (4)
  1. AVINZA [Suspect]
     Indication: FALL
     Dosage: 30 MG, UNK
     Route: 048
     Dates: start: 20061001
  2. MORPHINE SULFATE [Concomitant]
  3. NEXIUM [Concomitant]
  4. ANTIHYPERTENSIVES [Concomitant]

REACTIONS (4)
  - DRUG DIVERSION [None]
  - DRUG INEFFECTIVE [None]
  - NAUSEA [None]
  - PAIN [None]
